FAERS Safety Report 5405518-0 (Version None)
Quarter: 2007Q3

REPORT INFORMATION
  Report Type: 
  Country: None (occurrence: None)
  Receive Date: 20070803
  Receipt Date: 20070724
  Transmission Date: 20080115
  Serious: Yes (Other)
  Sender: FDA-Public Use
  Company Number: ZA-PFIZER INC-2007061745

PATIENT
  Age: 40 Year
  Sex: Female

DRUGS (1)
  1. DEPO-MEDROL [Suspect]
     Indication: SPONDYLITIS
     Route: 050

REACTIONS (6)
  - DYSPHAGIA [None]
  - MUSCLE SPASMS [None]
  - PNEUMONIA ASPIRATION [None]
  - QUADRIPLEGIA [None]
  - SPEECH DISORDER [None]
  - SYNCOPE [None]
